FAERS Safety Report 8076321-0 (Version None)
Quarter: 2012Q1

REPORT INFORMATION
  Report Type: 
  Country: None (occurrence: None)
  Receive Date: 20120127
  Receipt Date: 20120120
  Transmission Date: 20120608
  Serious: No
  Sender: FDA-Public Use
  Company Number: US-B.I. PHARMACEUTICALS,INC./RIDGEFIELD-2012-BP-01241BP

PATIENT
  Age: 86 Year
  Sex: Female

DRUGS (5)
  1. PRADAXA [Suspect]
     Indication: ATRIAL FIBRILLATION
     Dosage: 150 MG
     Route: 048
     Dates: start: 20110801, end: 20111001
  2. METOPROLOL TARTRATE [Concomitant]
  3. PRADAXA [Suspect]
     Dosage: 225 MG
     Route: 048
     Dates: start: 20111001, end: 20111101
  4. CARDIA XT [Concomitant]
  5. PRADAXA [Suspect]
     Dosage: 150 MG
     Route: 048

REACTIONS (2)
  - DYSPEPSIA [None]
  - LETHARGY [None]
